FAERS Safety Report 4808434-8 (Version None)
Quarter: 2005Q4

REPORT INFORMATION
  Report Type: 
  Country: None (occurrence: None)
  Receive Date: 20051021
  Receipt Date: 20040903
  Transmission Date: 20060501
  Serious: No
  Sender: FDA-Public Use
  Company Number: AU_040908039

PATIENT
  Age: 75 Year
  Sex: Female

DRUGS (11)
  1. OLANZAPINE [Suspect]
     Indication: BIPOLAR I DISORDER
     Dosage: 15 MG
  2. VALPROATE SODIUM [Concomitant]
  3. QUETIAPINE FUMARATE [Concomitant]
  4. PREDNISOLONE SODIUM PHOSPHATE [Concomitant]
  5. TIMOLOL MALEATE [Concomitant]
  6. TEMAZEPAM [Concomitant]
  7. ATROPT (ATROPINE SULFATE) [Concomitant]
  8. ACETAMINOPHEN [Concomitant]
  9. DOCUSATE SODIUM [Concomitant]
  10. MULTIVITAMINS NOS (MULTIVITAMINS NOS) [Concomitant]
  11. AUGMENTIN '125' [Concomitant]

REACTIONS (4)
  - NEUTROPENIA [None]
  - TARDIVE DYSKINESIA [None]
  - THERAPY NON-RESPONDER [None]
  - WHITE BLOOD CELL COUNT DECREASED [None]
